FAERS Safety Report 23201820 (Version 1)
Quarter: 2023Q4

REPORT INFORMATION
  Report Type: Spontaneous
  Country: IT (occurrence: IT)
  Receive Date: 20231120
  Receipt Date: 20231120
  Transmission Date: 20240109
  Serious: Yes (Other)
  Sender: FDA-Public Use
  Company Number: None

PATIENT
  Age: 66 Year
  Sex: Female

DRUGS (3)
  1. TAFINLAR [Suspect]
     Active Substance: DABRAFENIB MESYLATE
     Indication: Superficial spreading melanoma stage unspecified
     Dosage: 75 MG (LA PAZIENTE ASSUME DABRAFENIB 75 MG 2 CAPSULE 2 VOLTE AL GIORNO: 2 CAPSULE ORE 8 + 2 CAPSULE
     Route: 048
  2. MEKINIST [Concomitant]
     Active Substance: TRAMETINIB DIMETHYL SULFOXIDE
     Indication: Superficial spreading melanoma stage unspecified
     Dosage: 2 MG (2 MILLIGRAMMI 1 COMPRESSA ORE 8)
     Route: 048
  3. PANTOPRAZOLE SODIUM [Concomitant]
     Active Substance: PANTOPRAZOLE SODIUM
     Indication: Product used for unknown indication
     Dosage: UNK
     Route: 065

REACTIONS (4)
  - Hyperpyrexia [Unknown]
  - Flatulence [Unknown]
  - Gastrointestinal disorder [Unknown]
  - Abdominal pain upper [Unknown]

NARRATIVE: CASE EVENT DATE: 20231001
